FAERS Safety Report 5079012-3 (Version None)
Quarter: 2006Q3

REPORT INFORMATION
  Report Type: 
  Country: None (occurrence: None)
  Receive Date: 20060808
  Receipt Date: 20060731
  Transmission Date: 20061208
  Serious: No
  Sender: FDA-Public Use
  Company Number: 228219

PATIENT
  Age: 13 Year
  Sex: Female

DRUGS (5)
  1. XOLAIR [Suspect]
     Indication: ASTHMA
     Dosage: 375 UNK, SUBCUTANEOUS
     Route: 058
     Dates: start: 20041005, end: 20060620
  2. FLONASE [Concomitant]
  3. ALBUTEROL (ALBUTEROL/ALBUTEROL SULFATE) [Concomitant]
  4. XOPENEX [Concomitant]
  5. PULMICORT [Concomitant]

REACTIONS (3)
  - ARTHRITIS [None]
  - SEROSITIS [None]
  - SERUM SICKNESS [None]
